FAERS Safety Report 5361828-7 (Version None)
Quarter: 2007Q2

REPORT INFORMATION
  Report Type: 
  Country: None (occurrence: None)
  Receive Date: 20070619
  Receipt Date: 20070605
  Transmission Date: 20071010
  Serious: Yes (Other)
  Sender: FDA-Public Use
  Company Number: US-ELI_LILLY_AND_COMPANY-US200706001026

PATIENT
  Age: 44 Year
  Sex: Female

DRUGS (5)
  1. CYMBALTA [Suspect]
     Indication: DEPRESSION
     Dosage: 20 MG, DAILY (1/D)
     Route: 048
     Dates: start: 20061212, end: 20061218
  2. CYMBALTA [Suspect]
     Dosage: 20 MG, 2/D
     Route: 048
     Dates: start: 20061219
  3. CYMBALTA [Suspect]
     Dosage: 30 MG, 2/D
     Route: 048
  4. CELEXA [Concomitant]
     Dosage: 60 MG, UNK
     Dates: start: 20060922
  5. BUSPAR [Concomitant]
     Dosage: 30 MG, UNK

REACTIONS (2)
  - AGGRESSION [None]
  - MANIA [None]
